FAERS Safety Report 19740216 (Version 2)
Quarter: 2021Q4

REPORT INFORMATION
  Report Type: Report from Study
  Country: US (occurrence: US)
  Receive Date: 20210823
  Receipt Date: 20211109
  Transmission Date: 20220303
  Serious: Yes (Hospitalization)
  Sender: FDA-Public Use
  Company Number: US-ABBVIE-21K-163-4034188-00

PATIENT
  Age: 22 Year
  Sex: Female
  Weight: 73.548 kg

DRUGS (6)
  1. HUMIRA [Suspect]
     Active Substance: ADALIMUMAB
     Indication: Crohn^s disease
     Dosage: LOADING DOSE?CF
     Route: 058
     Dates: start: 20210806, end: 20210806
  2. PREDNISONE [Concomitant]
     Active Substance: PREDNISONE
     Indication: Crohn^s disease
  3. VITAMIN D [Concomitant]
     Active Substance: VITAMIN D NOS
     Indication: Supplementation therapy
  4. IRON [Concomitant]
     Active Substance: IRON
     Indication: Supplementation therapy
  5. COVID-19 VACCINE [Concomitant]
     Indication: COVID-19 immunisation
     Route: 030
     Dates: start: 20210418, end: 20210418
  6. COVID-19 VACCINE [Concomitant]
     Route: 030
     Dates: start: 20210509, end: 20210509

REACTIONS (2)
  - Intestinal obstruction [Recovered/Resolved]
  - Crohn^s disease [Unknown]

NARRATIVE: CASE EVENT DATE: 20210807
